FAERS Safety Report 7316069-0 (Version None)
Quarter: 2011Q1

REPORT INFORMATION
  Report Type: 
  Country: None (occurrence: None)
  Receive Date: 20110225
  Receipt Date: 20110223
  Transmission Date: 20110831
  Serious: Yes (Death)
  Sender: FDA-Public Use
  Company Number: US-PFIZER INC-2011040080

PATIENT
  Sex: Male
  Weight: 99.773 kg

DRUGS (2)
  1. TRIAZOLAM [Suspect]
     Indication: HYPERSENSITIVITY
     Dosage: 0.25 MG, DAILY
     Route: 048
     Dates: start: 20101129
  2. DILTIAZEM [Concomitant]
     Indication: CARDIAC DISORDER
     Dosage: UNK

REACTIONS (5)
  - DEATH [None]
  - NAUSEA [None]
  - SOMNOLENCE [None]
  - HEART RATE DECREASED [None]
  - DISORIENTATION [None]
